FAERS Safety Report 13125629 (Version 1)
Quarter: 2017Q1

REPORT INFORMATION
  Report Type: Spontaneous
  Country: US (occurrence: US)
  Receive Date: 20170117
  Receipt Date: 20170117
  Transmission Date: 20170428
  Serious: Yes (Other)
  Sender: FDA-Public Use
  Company Number: None

PATIENT
  Age: 47 Year
  Sex: Female
  Weight: 121.05 kg

DRUGS (4)
  1. VITAMIN D [Concomitant]
     Active Substance: CHOLECALCIFEROL
  2. L-THRYOXINE [Concomitant]
  3. PRE-NATAL VITAMIN [Concomitant]
  4. BENICAR HCT [Suspect]
     Active Substance: HYDROCHLOROTHIAZIDE\OLMESARTAN MEDOXOMIL
     Indication: HYPERTENSION
     Dosage: ?          QUANTITY:1 TABLET(S);?
     Route: 048
     Dates: start: 20161206, end: 20161227

REACTIONS (10)
  - Pain in extremity [None]
  - Arthralgia [None]
  - Peripheral swelling [None]
  - Myalgia [None]
  - Gait disturbance [None]
  - Pollakiuria [None]
  - Skin exfoliation [None]
  - Spinal column stenosis [None]
  - Feeling abnormal [None]
  - Dysstasia [None]

NARRATIVE: CASE EVENT DATE: 20161222
